FAERS Safety Report 8158137-X (Version None)
Quarter: 2012Q1

REPORT INFORMATION
  Report Type: 
  Country: None (occurrence: None)
  Receive Date: 20120222
  Receipt Date: 20120220
  Transmission Date: 20120608
  Serious: Yes (Death, Other)
  Sender: FDA-Public Use
  Company Number: PHHY2012GB014462

PATIENT
  Age: 22 Year
  Sex: Male

DRUGS (5)
  1. CLOZAPINE [Suspect]
     Indication: SCHIZOPHRENIA
     Dosage: 250 MG, QD
     Route: 048
     Dates: start: 20111130
  2. LORAZEPAM [Suspect]
     Indication: ANXIETY
     Dosage: 1 T0 4 MG, PRN
  3. KWELLS [Concomitant]
     Indication: SALIVARY HYPERSECRETION
     Dosage: 300 UG, QD
  4. PROPRANOLOL [Concomitant]
     Indication: SINUS TACHYCARDIA
     Dosage: 40 MG, BID
  5. SERTRALINE HYDROCHLORIDE [Concomitant]
     Indication: DEPRESSION
     Dosage: 150 MG, QD

REACTIONS (3)
  - ASPHYXIA [None]
  - OVERDOSE [None]
  - ELECTROCARDIOGRAM QT SHORTENED [None]
